FAERS Safety Report 9297793 (Version 1)
Quarter: 2013Q2

REPORT INFORMATION
  Report Type: Spontaneous
  Country: US (occurrence: None)
  Receive Date: 20130517
  Receipt Date: 20130517
  Transmission Date: 20140414
  Serious: Yes (Hospitalization)
  Sender: FDA-Public Use
  Company Number: None

PATIENT
  Age: 41 Year
  Sex: Female

DRUGS (1)
  1. CLARITHROMYCIN [Suspect]
     Dates: start: 20111229, end: 20120108

REACTIONS (15)
  - Hypogammaglobulinaemia [None]
  - Haemangioma of spleen [None]
  - Diverticulitis [None]
  - Liver injury [None]
  - Upper respiratory tract infection [None]
  - Disease recurrence [None]
  - Sinusitis [None]
  - Abdominal pain upper [None]
  - Aspartate aminotransferase increased [None]
  - Alanine aminotransferase increased [None]
  - Blood bilirubin increased [None]
  - Blood alkaline phosphatase increased [None]
  - Blood albumin decreased [None]
  - Protein total decreased [None]
  - Condition aggravated [None]
